FAERS Safety Report 8578791-8 (Version None)
Quarter: 2012Q3

REPORT INFORMATION
  Report Type: 
  Country: None (occurrence: None)
  Receive Date: 20120808
  Receipt Date: 20120803
  Transmission Date: 20120928
  Serious: Yes (Hospitalization)
  Sender: FDA-Public Use
  Company Number: FR-SANOFI-AVENTIS-2012SA055544

PATIENT
  Sex: Female

DRUGS (18)
  1. TERCIAN [Concomitant]
     Route: 048
     Dates: start: 20120105, end: 20120110
  2. CALCIDOSE VITAMINE D [Concomitant]
     Route: 048
  3. RABEPRAZOLE SODIUM [Concomitant]
     Route: 048
  4. TIAPRIDAL [Suspect]
     Dosage: 3 DROPS IN THE MORNING AND 5 DROPS IN THE EVENING
     Route: 048
  5. BISOPROLOL FUMARATE [Suspect]
     Route: 048
  6. LANTUS [Concomitant]
     Route: 058
  7. LASIX [Suspect]
     Route: 048
  8. RAMIPRIL [Suspect]
     Route: 048
  9. PAROXETINE HCL [Suspect]
     Route: 048
  10. COUMADIN [Concomitant]
     Route: 048
  11. NEXIUM [Concomitant]
     Route: 048
     Dates: start: 20120327
  12. POTASSIUM CHLORIDE [Concomitant]
     Route: 048
  13. CORDARONE [Concomitant]
     Route: 048
  14. BRICANYL [Concomitant]
     Route: 055
     Dates: start: 20120327
  15. ATROVENT [Concomitant]
     Route: 055
     Dates: start: 20120327
  16. TIAPRIDAL [Suspect]
     Indication: VASCULAR DEMENTIA
     Dosage: 5 DROPS IN THE MORNING AND 10 DROPS IN THE EVENING
     Route: 048
     Dates: start: 20120110
  17. ATORVASTATIN [Concomitant]
     Route: 048
  18. ACETAMINOPHEN [Concomitant]
     Dosage: UP TO 3 G DAILY
     Route: 048

REACTIONS (1)
  - FALL [None]
